FAERS Safety Report 8001446-5 (Version None)
Quarter: 2011Q4

REPORT INFORMATION
  Report Type: 
  Country: None (occurrence: None)
  Receive Date: 20111222
  Receipt Date: 20111207
  Transmission Date: 20120403
  Serious: Yes (Death, Other)
  Sender: FDA-Public Use
  Company Number: US-ROCHE-1020855

PATIENT

DRUGS (5)
  1. MABTHERA [Suspect]
     Indication: B-CELL LYMPHOMA
     Dosage: DAY 1 AND 8
     Route: 042
  2. PROCARBAZINE HYDROCHLORIDE [Suspect]
     Indication: B-CELL LYMPHOMA
     Dosage: DAY 1-14
     Route: 048
  3. CYCLOPHOSPHAMIDE [Suspect]
     Indication: B-CELL LYMPHOMA
     Dosage: DAY 1 AND 8
     Route: 042
  4. VINCRISTINE [Suspect]
     Indication: B-CELL LYMPHOMA
     Dosage: DAY 1AND 8
     Route: 042
  5. PREDNISONE [Suspect]
     Indication: B-CELL LYMPHOMA
     Dosage: DAY 1-14
     Route: 048

REACTIONS (8)
  - PULMONARY EMBOLISM [None]
  - BACTERAEMIA [None]
  - MUCOSAL INFLAMMATION [None]
  - LUNG DISORDER [None]
  - CARDIOTOXICITY [None]
  - PLEURAL DISORDER [None]
  - ANAPHYLACTIC REACTION [None]
  - SEPSIS [None]
